FAERS Safety Report 17681991 (Version 3)
Quarter: 2020Q3

REPORT INFORMATION
  Report Type: Spontaneous
  Country: JP (occurrence: JP)
  Receive Date: 20200418
  Receipt Date: 20200708
  Transmission Date: 20201102
  Serious: Yes (Other)
  Sender: FDA-Public Use
  Company Number: JP-009507513-2004JPN001005J

PATIENT
  Age: 35 Year
  Sex: Male

DRUGS (2)
  1. TEMODAL [Suspect]
     Active Substance: TEMOZOLOMIDE
     Indication: MALIGNANT GLIOMA
     Dosage: 140 MILLIGRAM/TIME
     Route: 048
     Dates: start: 201610
  2. TEMODAL [Suspect]
     Active Substance: TEMOZOLOMIDE
     Dosage: 300 MILLIGRAM
     Route: 048
     Dates: start: 20161222

REACTIONS (1)
  - Oligoasthenozoospermia [Unknown]

NARRATIVE: CASE EVENT DATE: 201703
